FAERS Safety Report 10526679 (Version 1)
Quarter: 2014Q4

REPORT INFORMATION
  Report Type: Spontaneous
  Country: US (occurrence: None)
  Receive Date: 20141015
  Receipt Date: 20141015
  Transmission Date: 20150528
  Serious: Yes (Hospitalization, Other)
  Sender: FDA-Public Use
  Company Number: None

PATIENT
  Age: 63 Year
  Sex: Male
  Weight: 96.16 kg

DRUGS (1)
  1. ACTOS [Suspect]
     Active Substance: PIOGLITAZONE HYDROCHLORIDE
     Indication: TYPE 2 DIABETES MELLITUS
     Dosage: TAKEN BY MOUTH; 1 TABLET
     Route: 048
     Dates: start: 20020916, end: 20140927

REACTIONS (6)
  - Dizziness [None]
  - Syncope [None]
  - Loss of consciousness [None]
  - Cardiac failure [None]
  - Head injury [None]
  - Memory impairment [None]

NARRATIVE: CASE EVENT DATE: 20140927
